FAERS Safety Report 15017797 (Version 2)
Quarter: 2018Q2

REPORT INFORMATION
  Report Type: Spontaneous
  Country: US (occurrence: US)
  Receive Date: 20180615
  Receipt Date: 20180615
  Transmission Date: 20180711
  Serious: No
  Sender: FDA-Public Use
  Company Number: US-PRINSTON PHARMACEUTICAL INC.-2018PRN00198

PATIENT
  Age: 41 Year
  Sex: Female
  Weight: 47.62 kg

DRUGS (5)
  1. GILENYA [Concomitant]
     Active Substance: FINGOLIMOD HYDROCHLORIDE
     Dosage: 5 MG, 1X/DAY
  2. TIZANIDINE. [Concomitant]
     Active Substance: TIZANIDINE
     Dosage: 4MG, AS NEEDED
  3. AMBIEN [Concomitant]
     Active Substance: ZOLPIDEM TARTRATE
     Dosage: 10 MG, 1X/DAY AT NIGHT
  4. DULOXETINE. [Suspect]
     Active Substance: DULOXETINE
     Indication: PAIN
     Dosage: 60 MG, 1X/DAY (AT NIGHT)
     Route: 048
     Dates: start: 20180403, end: 20180403
  5. DULOXETINE. [Suspect]
     Active Substance: DULOXETINE
     Dosage: 60 MG, 1X/DAY (AROUND 9 AM)
     Route: 048
     Dates: start: 20180408, end: 20180408

REACTIONS (8)
  - Asthenia [Recovered/Resolved]
  - Weight decreased [Not Recovered/Not Resolved]
  - Diarrhoea [Recovered/Resolved]
  - Feeding disorder [Recovered/Resolved]
  - Nausea [Recovered/Resolved]
  - Vertigo [Recovered/Resolved]
  - Scar [Not Recovered/Not Resolved]
  - Skin reaction [Recovering/Resolving]

NARRATIVE: CASE EVENT DATE: 201804
